FAERS Safety Report 7413835-8 (Version None)
Quarter: 2011Q2

REPORT INFORMATION
  Report Type: 
  Country: None (occurrence: None)
  Receive Date: 20110413
  Receipt Date: 20110411
  Transmission Date: 20111010
  Serious: Yes (Other)
  Sender: FDA-Public Use
  Company Number: US-ABBOTT-11P-163-0715098-00

PATIENT
  Sex: Female
  Weight: 72.64 kg

DRUGS (1)
  1. MERIDIA [Suspect]
     Indication: OBESITY
     Dates: start: 20100101, end: 20100401

REACTIONS (3)
  - HEART RATE INCREASED [None]
  - SYNCOPE [None]
  - LOSS OF CONSCIOUSNESS [None]
